FAERS Safety Report 21225239 (Version 8)
Quarter: 2024Q1

REPORT INFORMATION
  Report Type: Spontaneous
  Country: JP (occurrence: JP)
  Receive Date: 20220817
  Receipt Date: 20240129
  Transmission Date: 20240410
  Serious: Yes (Hospitalization, Other)
  Sender: FDA-Public Use
  Company Number: JP-ONO-2022JP008277

PATIENT
  Age: 63 Year
  Sex: Male

DRUGS (9)
  1. YERVOY [Suspect]
     Active Substance: IPILIMUMAB
     Indication: Non-small cell lung cancer recurrent
     Route: 041
     Dates: start: 20211224, end: 20220324
  2. YERVOY [Suspect]
     Active Substance: IPILIMUMAB
  3. OPDIVO [Suspect]
     Active Substance: NIVOLUMAB
     Indication: Non-small cell lung cancer recurrent
     Route: 041
  4. OPDIVO [Suspect]
     Active Substance: NIVOLUMAB
     Route: 041
  5. OPDIVO [Suspect]
     Active Substance: NIVOLUMAB
     Route: 041
     Dates: start: 20211224, end: 20220324
  6. PEMETREXED [Suspect]
     Active Substance: PEMETREXED
     Indication: Non-small cell lung cancer recurrent
     Dates: start: 20211224
  7. PEMETREXED [Suspect]
     Active Substance: PEMETREXED
     Dates: start: 20220104
  8. CARBOPLATIN [Suspect]
     Active Substance: CARBOPLATIN
     Indication: Non-small cell lung cancer recurrent
     Dates: start: 20211224
  9. CARBOPLATIN [Suspect]
     Active Substance: CARBOPLATIN
     Dates: start: 20220114

REACTIONS (19)
  - Rheumatoid arthritis [Unknown]
  - Nausea [Unknown]
  - Platelet count decreased [Unknown]
  - Malaise [Unknown]
  - Oedema [Unknown]
  - Myalgia [Unknown]
  - Neutropenia [Unknown]
  - Aspartate aminotransferase increased [Unknown]
  - Alanine aminotransferase increased [Unknown]
  - Arthralgia [Unknown]
  - Hypothyroidism [Unknown]
  - Myasthenia gravis [Unknown]
  - Adrenal insufficiency [Unknown]
  - Pyrexia [Unknown]
  - Decreased appetite [Unknown]
  - Hypopituitarism [Unknown]
  - Adrenocorticotropic hormone deficiency [Unknown]
  - Dizziness [Unknown]
  - Thyroiditis [Unknown]

NARRATIVE: CASE EVENT DATE: 20220210
